FAERS Safety Report 5654637-2 (Version None)
Quarter: 2008Q1

REPORT INFORMATION
  Report Type: 
  Country: None (occurrence: None)
  Receive Date: 20080219
  Receipt Date: 20071025
  Transmission Date: 20080703
  Serious: No
  Sender: FDA-Public Use
  Company Number: WAES 0710USA05634

PATIENT
  Age: 74 Year
  Sex: Female
  Weight: 68.9467 kg

DRUGS (8)
  1. JANUVIA [Suspect]
     Indication: TYPE 2 DIABETES MELLITUS
     Dosage: 100 MG/PO
     Route: 048
     Dates: start: 20070110
  2. AVANDIA [Concomitant]
  3. CENESTIN [Concomitant]
  4. LIPITOR [Concomitant]
  5. LOTREL [Concomitant]
  6. SYNTHROID [Concomitant]
  7. GLYBURIDE [Concomitant]
  8. METFORMIN HCL [Concomitant]

REACTIONS (1)
  - ALOPECIA [None]
